FAERS Safety Report 9491680 (Version 1)
Quarter: 2013Q1

REPORT INFORMATION
  Report Type: Not Available
  Country: US (occurrence: US)
  Receive Date: 20121219
  Receipt Date: 20121219
  Transmission Date: 20140127
  Serious: Yes (Other)
  Sender: FDA-Public Use
  Company Number: US-LUNDBECK-DKLU1085302

PATIENT
  Sex: Male

DRUGS (2)
  1. ONFI [Suspect]
     Indication: PARTIAL SEIZURES
     Route: 048
     Dates: start: 201206
  2. ONFI [Suspect]
     Indication: EPILEPSY
     Route: 048

REACTIONS (8)
  - Convulsion [Unknown]
  - Hypersomnia [Unknown]
  - Fall [Unknown]
  - Hyperacusis [Unknown]
  - Postictal headache [Unknown]
  - Postictal state [Unknown]
  - Aggression [Unknown]
  - Speech disorder [Unknown]
